FAERS Safety Report 6750701-5 (Version None)
Quarter: 2010Q2

REPORT INFORMATION
  Report Type: 
  Country: None (occurrence: None)
  Receive Date: 20100602
  Receipt Date: 20100524
  Transmission Date: 20101027
  Serious: No
  Sender: FDA-Public Use
  Company Number: US-BIOGENIDEC-2010BI017358

PATIENT
  Age: 65 Year
  Sex: Female

DRUGS (1)
  1. TYSABRI [Suspect]
     Indication: MULTIPLE SCLEROSIS
     Route: 042
     Dates: start: 20080415

REACTIONS (6)
  - BALANCE DISORDER [None]
  - EPISTAXIS [None]
  - EXCORIATION [None]
  - FALL [None]
  - PERIORBITAL HAEMATOMA [None]
  - SKIN LACERATION [None]
